FAERS Safety Report 5899355-0 (Version None)
Quarter: 2008Q3

REPORT INFORMATION
  Report Type: 
  Country: None (occurrence: None)
  Receive Date: 20080924
  Receipt Date: 20080912
  Transmission Date: 20090109
  Serious: Yes (Other)
  Sender: FDA-Public Use
  Company Number: 2008S1011828

PATIENT
  Age: 26 Year
  Sex: Female

DRUGS (3)
  1. AMNESTEEM [Suspect]
     Dosage: 40 MG;TWICE A DAY;ORAL
     Route: 048
     Dates: start: 20080428, end: 20080617
  2. ORAL CONTRACEPTIVE NOS [Concomitant]
  3. ................. [Concomitant]

REACTIONS (4)
  - ALOPECIA [None]
  - DRUG DOSE OMISSION [None]
  - DRUG EXPOSURE DURING PREGNANCY [None]
  - PREGNANCY ON ORAL CONTRACEPTIVE [None]
